FAERS Safety Report 5217796-1 (Version None)
Quarter: 2007Q1

REPORT INFORMATION
  Report Type: 
  Country: None (occurrence: None)
  Receive Date: 20061130
  Receipt Date: 20060919
  Transmission Date: 20070707
  Serious: Yes (Hospitalization)
  Sender: FDA-Public Use
  Company Number: US200608005764

PATIENT
  Age: 56 Year
  Sex: Female
  Weight: 94.3 kg

DRUGS (7)
  1. ZYPREXA [Suspect]
     Dosage: 10 MG
     Dates: start: 19970701, end: 19981201
  2. ZYPREXA [Suspect]
     Dosage: 10 MG
     Dates: start: 19980101, end: 20040101
  3. QUETIAPINE FUMARATE [Concomitant]
  4. RISPERIDONE [Concomitant]
  5. THIOTHIXENE [Concomitant]
  6. BUPROPION HCL [Concomitant]
  7. PREDNISONE TAB [Concomitant]

REACTIONS (5)
  - BLOOD CHOLESTEROL INCREASED [None]
  - DIABETIC COMA [None]
  - HYPERTENSION [None]
  - METABOLIC DISORDER [None]
  - OBESITY [None]
